FAERS Safety Report 5364654-8 (Version None)
Quarter: 2007Q2

REPORT INFORMATION
  Report Type: 
  Country: None (occurrence: None)
  Receive Date: 20070621
  Receipt Date: 20070611
  Transmission Date: 20071010
  Serious: Yes (Other)
  Sender: FDA-Public Use
  Company Number: ES-JNJFOC-20070300678

PATIENT
  Age: 60 Year
  Sex: Female

DRUGS (6)
  1. REMICADE [Suspect]
     Route: 042
  2. REMICADE [Suspect]
     Indication: RHEUMATOID ARTHRITIS
     Route: 042
  3. METHOTREXATE [Concomitant]
     Route: 065
  4. CORTICOIDS [Concomitant]
     Dosage: LOW DOSES
     Route: 065
  5. INDOMETHACIN [Concomitant]
  6. DEFLAZACORT [Concomitant]

REACTIONS (1)
  - PSORIASIS [None]
